FAERS Safety Report 10642135 (Version 1)
Quarter: 2014Q4

REPORT INFORMATION
  Report Type: Spontaneous
  Country: FR (occurrence: FR)
  Receive Date: 20141210
  Receipt Date: 20141210
  Transmission Date: 20150529
  Serious: Yes (Other)
  Sender: FDA-Public Use
  Company Number: FR-ROCHE-1503763

PATIENT
  Age: 60 Year
  Sex: Female

DRUGS (5)
  1. AVASTIN [Suspect]
     Active Substance: BEVACIZUMAB
     Indication: GLIOBLASTOMA
     Route: 041
     Dates: start: 2013, end: 20140113
  2. MUPHORAN [Concomitant]
     Active Substance: FOTEMUSTINE
     Route: 065
     Dates: start: 20140915
  3. AVASTIN [Suspect]
     Active Substance: BEVACIZUMAB
     Dosage: RE-ADMINISTERED
     Route: 041
     Dates: start: 20140915
  4. SIMVASTATINE [Concomitant]
     Active Substance: SIMVASTATIN
     Route: 065
     Dates: start: 201403
  5. TEMODAL [Concomitant]
     Active Substance: TEMOZOLOMIDE

REACTIONS (1)
  - Impaired healing [Recovered/Resolved]

NARRATIVE: CASE EVENT DATE: 201401
